FAERS Safety Report 24155228 (Version 1)
Quarter: 2024Q3

REPORT INFORMATION
  Report Type: Spontaneous
  Country: CN (occurrence: CN)
  Receive Date: 20240731
  Receipt Date: 20240731
  Transmission Date: 20241016
  Serious: Yes (Other)
  Sender: SANDOZ
  Company Number: CN-002147023-NVSC2024CN153337

PATIENT
  Age: 75 Year
  Sex: Male
  Weight: 52.5 kg

DRUGS (2)
  1. DEXAMETHASONE\TOBRAMYCIN [Suspect]
     Active Substance: DEXAMETHASONE\TOBRAMYCIN
     Dosage: 1 DRP, QD BEFORE GOING TO BED
     Route: 065
     Dates: start: 20240703, end: 20240711
  2. DEXAMETHASONE\TOBRAMYCIN [Suspect]
     Active Substance: DEXAMETHASONE\TOBRAMYCIN
     Indication: Intraocular lens user
     Dosage: 1 DRP, QID TO DRIP EYE
     Route: 065
     Dates: start: 20240703, end: 20240711

REACTIONS (3)
  - Corneal exfoliation [Recovering/Resolving]
  - Conjunctival hyperaemia [Recovering/Resolving]
  - Corneal striae [Recovering/Resolving]

NARRATIVE: CASE EVENT DATE: 20240711
